FAERS Safety Report 15427149 (Version 1)
Quarter: 2018Q3

REPORT INFORMATION
  Report Type: Spontaneous
  Country: US (occurrence: US)
  Receive Date: 20180925
  Receipt Date: 20180925
  Transmission Date: 20181010
  Serious: Yes (Life-Threatening, Hospitalization, Other)
  Sender: FDA-Public Use
  Company Number: US-AMAG PHARMACEUTICALS, INC.-AMAG201805099

PATIENT
  Age: 73 Year
  Sex: Female

DRUGS (1)
  1. FERAHEME [Suspect]
     Active Substance: FERUMOXYTOL NON-STOICHIOMETRIC MAGNETITE
     Indication: IRON DEFICIENCY ANAEMIA
     Dosage: 510 MG, SINGLE
     Route: 041
     Dates: start: 20180906, end: 20180906

REACTIONS (6)
  - Hyperhidrosis [Unknown]
  - Anaphylactic reaction [Recovered/Resolved]
  - Blood pressure decreased [Recovered/Resolved]
  - Foaming at mouth [Unknown]
  - Pallor [Unknown]
  - Cardiac arrest [Recovered/Resolved]

NARRATIVE: CASE EVENT DATE: 20180906
